FAERS Safety Report 8544363-4 (Version None)
Quarter: 2012Q3

REPORT INFORMATION
  Report Type: 
  Country: None (occurrence: None)
  Receive Date: 20120717
  Receipt Date: 20120702
  Transmission Date: 20120928
  Serious: Yes (Disabling, Other)
  Sender: FDA-Public Use
  Company Number: 2011MA002700

PATIENT
  Sex: Female

DRUGS (8)
  1. CLINDAMYCIN [Concomitant]
  2. COMBIVENT [Concomitant]
  3. COMPAZINE [Concomitant]
  4. ALPRAZOLAM [Concomitant]
  5. BENZONATATE [Concomitant]
  6. METOCLOPRAMIDE [Suspect]
     Indication: DYSPEPSIA
     Dosage: 10 MG; 2 TAB IN AM, 2 AT HS, 1 AT LUNCH AND DINNER; PO
     Route: 048
     Dates: start: 20040223, end: 20110131
  7. METOCLOPRAMIDE [Suspect]
     Indication: ABDOMINAL DISTENSION
     Dosage: 10 MG; 2 TAB IN AM, 2 AT HS, 1 AT LUNCH AND DINNER; PO
     Route: 048
     Dates: start: 20040223, end: 20110131
  8. CHANTIX [Concomitant]

REACTIONS (21)
  - EMOTIONAL DISORDER [None]
  - NERVOUS SYSTEM DISORDER [None]
  - DEFORMITY [None]
  - INCORRECT DRUG ADMINISTRATION DURATION [None]
  - EMOTIONAL DISTRESS [None]
  - MULTIPLE INJURIES [None]
  - RESTLESS LEGS SYNDROME [None]
  - MOVEMENT DISORDER [None]
  - ANHEDONIA [None]
  - FEAR [None]
  - PAIN [None]
  - EXTRAPYRAMIDAL DISORDER [None]
  - ACTIVITIES OF DAILY LIVING IMPAIRED [None]
  - DYSTONIA [None]
  - TREMOR [None]
  - QUALITY OF LIFE DECREASED [None]
  - ANXIETY [None]
  - FAMILY STRESS [None]
  - TARDIVE DYSKINESIA [None]
  - AKATHISIA [None]
  - ECONOMIC PROBLEM [None]
